FAERS Safety Report 6657395-8 (Version None)
Quarter: 2010Q1

REPORT INFORMATION
  Report Type: 
  Country: None (occurrence: None)
  Receive Date: 20100330
  Receipt Date: 20100320
  Transmission Date: 20100710
  Serious: Yes (Hospitalization)
  Sender: FDA-Public Use
  Company Number: CA-JNJFOC-20091201828

PATIENT
  Sex: Male
  Weight: 84 kg

DRUGS (3)
  1. REMICADE [Suspect]
     Indication: CROHN'S DISEASE
     Route: 042
     Dates: start: 20081021, end: 20091202
  2. REMICADE [Suspect]
     Route: 042
     Dates: start: 20081021, end: 20091202
  3. REMICADE [Suspect]
     Dosage: 10 INFUSIONS TOTAL
     Route: 042
     Dates: start: 20081021, end: 20091202

REACTIONS (3)
  - HEADACHE [None]
  - HEPATIC CIRRHOSIS [None]
  - PYREXIA [None]
